FAERS Safety Report 14273969 (Version 1)
Quarter: 2017Q4

REPORT INFORMATION
  Report Type: Spontaneous
  Country: US (occurrence: US)
  Receive Date: 20171211
  Receipt Date: 20171211
  Transmission Date: 20180321
  Serious: Yes (Hospitalization, Other)
  Sender: FDA-Public Use
  Company Number: US-OTSUKA-2017_006749

PATIENT
  Sex: Female

DRUGS (1)
  1. ABILIFY [Suspect]
     Active Substance: ARIPIPRAZOLE
     Indication: PRODUCT USED FOR UNKNOWN INDICATION
     Dosage: UNK, QD
     Route: 065
     Dates: start: 1996

REACTIONS (5)
  - Cyst [Not Recovered/Not Resolved]
  - Fungal infection [Not Recovered/Not Resolved]
  - Coma [Unknown]
  - Diabetes mellitus [Not Recovered/Not Resolved]
  - Ear infection [Not Recovered/Not Resolved]
